FAERS Safety Report 8341259-8 (Version None)
Quarter: 2012Q2

REPORT INFORMATION
  Report Type: 
  Country: None (occurrence: None)
  Receive Date: 20120507
  Receipt Date: 20120503
  Transmission Date: 20120825
  Serious: Yes (Other)
  Sender: FDA-Public Use
  Company Number: PHEH2012US007609

PATIENT
  Sex: Male

DRUGS (5)
  1. AMANTADINE HCL [Concomitant]
     Indication: FATIGUE
     Dosage: 100 MG, UNK
     Route: 048
     Dates: start: 20100501
  2. VITAMIN D [Concomitant]
     Dosage: 2000 IU, UNK
  3. CIALIS [Concomitant]
     Indication: ERECTILE DYSFUNCTION
     Dosage: 20 MG, UNK
  4. GILENYA [Suspect]
     Indication: RELAPSING-REMITTING MULTIPLE SCLEROSIS
     Dosage: 0.5 MG, QD
     Route: 048
     Dates: start: 20120406, end: 20120406
  5. CALCIUM [Concomitant]
     Dosage: 500 MG, QD

REACTIONS (6)
  - BUNDLE BRANCH BLOCK LEFT [None]
  - ELECTROCARDIOGRAM T WAVE INVERSION [None]
  - ELECTROCARDIOGRAM QT PROLONGED [None]
  - ELECTROCARDIOGRAM PR SHORTENED [None]
  - HEART RATE DECREASED [None]
  - ELECTROCARDIOGRAM ABNORMAL [None]
